FAERS Safety Report 10176411 (Version 2)
Quarter: 2014Q2

REPORT INFORMATION
  Report Type: Spontaneous
  Country: IT (occurrence: None)
  Receive Date: 20140514
  Receipt Date: 20140520
  Transmission Date: 20141212
  Serious: Yes (Hospitalization, Other)
  Sender: FDA-Public Use
  Company Number: AUR-APL-2014-05534

PATIENT
  Age: 73 Year
  Sex: Female

DRUGS (1)
  1. AMOXICILLIN (AMOXICILLIN) [Suspect]
     Indication: HYPERPYREXIA
     Dosage: 1 D
     Route: 048
     Dates: start: 20140407, end: 20140409

REACTIONS (3)
  - Off label use [None]
  - Skin plaque [None]
  - Erythema [None]
